FAERS Safety Report 9891433 (Version 1)
Quarter: 2014Q1

REPORT INFORMATION
  Report Type: Spontaneous
  Country: US (occurrence: US)
  Receive Date: 20140212
  Receipt Date: 20140212
  Transmission Date: 20141002
  Serious: No
  Sender: FDA-Public Use
  Company Number: US-PFIZER INC-2014037376

PATIENT
  Age: 36 Year
  Sex: Female
  Weight: 58.96 kg

DRUGS (4)
  1. NEURONTIN [Suspect]
     Indication: INTERVERTEBRAL DISC DISORDER
     Dosage: UNK, 2X/DAY
     Dates: start: 2012
  2. NEURONTIN [Suspect]
     Indication: HYPOAESTHESIA
  3. NEURONTIN [Suspect]
     Indication: NEURALGIA
  4. XANAX [Concomitant]
     Dosage: 0.25 MG, AS NEEDED

REACTIONS (3)
  - Off label use [Unknown]
  - Gastrooesophageal reflux disease [Recovered/Resolved]
  - Abdominal discomfort [Recovered/Resolved]
